FAERS Safety Report 17315494 (Version 1)
Quarter: 2020Q1

REPORT INFORMATION
  Report Type: Spontaneous
  Country: US (occurrence: US)
  Receive Date: 20200124
  Receipt Date: 20200124
  Transmission Date: 20200409
  Serious: No
  Sender: FDA-Public Use
  Company Number: US-ELI_LILLY_AND_COMPANY-US201912014142

PATIENT
  Age: 36 Year
  Sex: Male

DRUGS (3)
  1. DEPAKOTE [Concomitant]
     Active Substance: DIVALPROEX SODIUM
     Indication: MIGRAINE
  2. EMGALITY [Suspect]
     Active Substance: GALCANEZUMAB-GNLM
     Indication: CLUSTER HEADACHE
     Dosage: 120 MG, MONTHLY (1/M)
     Route: 065
     Dates: start: 201906
  3. EMGALITY [Suspect]
     Active Substance: GALCANEZUMAB-GNLM
     Dosage: 200 MG, MONTHLY (1/M)
     Route: 065
     Dates: start: 20191001

REACTIONS (4)
  - Nervousness [Unknown]
  - Underdose [Unknown]
  - Anxiety [Unknown]
  - Chest discomfort [Unknown]

NARRATIVE: CASE EVENT DATE: 201906
